FAERS Safety Report 5234950-3 (Version None)
Quarter: 2007Q1

REPORT INFORMATION
  Report Type: 
  Country: None (occurrence: None)
  Receive Date: 20070210
  Receipt Date: 20070131
  Transmission Date: 20070707
  Serious: Yes (Other)
  Sender: FDA-Public Use
  Company Number: FR-ABBOTT-07P-056-0357783-00

PATIENT
  Age: 76 Year
  Sex: Female

DRUGS (2)
  1. VALPROIC ACID [Suspect]
     Indication: EPILEPSY
     Dates: start: 20040101
  2. PHENOBARBITAL TAB [Suspect]
     Indication: EPILEPSY
     Dates: end: 20040101

REACTIONS (13)
  - BIOPSY KIDNEY ABNORMAL [None]
  - CHOLECYSTECTOMY [None]
  - DRUG RASH WITH EOSINOPHILIA AND SYSTEMIC SYMPTOMS [None]
  - HEPATITIS [None]
  - HISTOLOGY ABNORMAL [None]
  - IMMUNOGLOBULINS ABNORMAL [None]
  - LEUKOCYTURIA [None]
  - PERIORBITAL OEDEMA [None]
  - PROTEINURIA [None]
  - PYREXIA [None]
  - RASH [None]
  - RENAL FAILURE ACUTE [None]
  - TUBULOINTERSTITIAL NEPHRITIS [None]
